FAERS Safety Report 4678118-8 (Version None)
Quarter: 2005Q2

REPORT INFORMATION
  Report Type: 
  Country: None (occurrence: None)
  Receive Date: 20050527
  Receipt Date: 20050518
  Transmission Date: 20051028
  Serious: Yes (Hospitalization)
  Sender: FDA-Public Use
  Company Number: 2005077425

PATIENT
  Age: 60 Year
  Sex: Female

DRUGS (2)
  1. SOMAVERT [Suspect]
     Indication: ACROMEGALY
     Dosage: SEE IMAGE
     Dates: start: 20040101
  2. SOMAVERT [Suspect]
     Indication: ACROMEGALY
     Dosage: SEE IMAGE
     Dates: start: 20050401

REACTIONS (1)
  - HYPERGLYCAEMIA [None]
